FAERS Safety Report 24917254 (Version 1)
Quarter: 2025Q1

REPORT INFORMATION
  Report Type: Spontaneous
  Country: PT (occurrence: PT)
  Receive Date: 20250203
  Receipt Date: 20250203
  Transmission Date: 20250409
  Serious: Yes (Life-Threatening)
  Sender: SANOFI AVENTIS
  Company Number: None

PATIENT
  Age: 43 Year
  Sex: Male

DRUGS (5)
  1. DOCETAXEL [Suspect]
     Active Substance: DOCETAXEL
     Indication: Prostate cancer metastatic
     Dosage: 162.75 MG (75MG/M2), CADA 21 DIAS
     Route: 042
     Dates: start: 20241226, end: 20241226
  2. ORADEXON [Concomitant]
     Active Substance: DEXAMETHASONE
     Route: 042
  3. HYDROCORTISONE [Concomitant]
     Active Substance: HYDROCORTISONE
     Route: 042
  4. Clemastina [Concomitant]
     Route: 042
  5. NUBEQA [Concomitant]
     Active Substance: DAROLUTAMIDE
     Dosage: 600 MG, BID
     Route: 048

REACTIONS (4)
  - Oxygen saturation decreased [Recovered/Resolved]
  - Erythema [Recovered/Resolved]
  - Dizziness [Recovered/Resolved]
  - Dyspnoea [Recovered/Resolved]

NARRATIVE: CASE EVENT DATE: 20241226
